FAERS Safety Report 10459014 (Version 1)
Quarter: 2014Q3

REPORT INFORMATION
  Report Type: Spontaneous
  Country: US (occurrence: None)
  Receive Date: 20140915
  Receipt Date: 20140915
  Transmission Date: 20150326
  Serious: Yes (Hospitalization)
  Sender: FDA-Public Use
  Company Number: 153240-2

PATIENT
  Age: 43 Year
  Sex: Female
  Weight: 64 kg

DRUGS (1)
  1. LEUCOVORIN CALCIUM. [Suspect]
     Active Substance: LEUCOVORIN CALCIUM
     Indication: HEPATOCELLULAR CARCINOMA
     Dosage: CYCLICAL
     Route: 042
     Dates: start: 20140522

REACTIONS (15)
  - Chest pain [None]
  - Vomiting [None]
  - Nausea [None]
  - Dizziness [None]
  - Decreased appetite [None]
  - Chest discomfort [None]
  - Cough [None]
  - Chills [None]
  - Fatigue [None]
  - Blood pressure increased [None]
  - Inflammation [None]
  - Abdominal pain [None]
  - Musculoskeletal pain [None]
  - Pyrexia [None]
  - Leukocytosis [None]

NARRATIVE: CASE EVENT DATE: 20140524
